FAERS Safety Report 9379193 (Version 1)
Quarter: 2013Q3

REPORT INFORMATION
  Report Type: Spontaneous
  Country: JP (occurrence: JP)
  Receive Date: 20130702
  Receipt Date: 20130702
  Transmission Date: 20140515
  Serious: Yes (Hospitalization)
  Sender: FDA-Public Use
  Company Number: JP-JNJFOC-20130616147

PATIENT
  Sex: 0

DRUGS (1)
  1. FINIBAX [Suspect]
     Indication: INFECTION
     Route: 041
     Dates: start: 20130617

REACTIONS (1)
  - Tubulointerstitial nephritis [Unknown]
